FAERS Safety Report 4888581-5 (Version None)
Quarter: 2005Q4

REPORT INFORMATION
  Report Type: 
  Country: None (occurrence: None)
  Receive Date: 20051215
  Receipt Date: 20050408
  Transmission Date: 20060501
  Serious: Yes (Other)
  Sender: FDA-Public Use
  Company Number: 2005058326

PATIENT

DRUGS (2)
  1. BEXTRA [Suspect]
     Indication: ILL-DEFINED DISORDER
     Route: 065
  2. PLAQUENIL (HYDROXYCHLORQUINE PHOSPHATE) [Concomitant]

REACTIONS (3)
  - BURNING SENSATION [None]
  - MOUTH ULCERATION [None]
  - SKIN EXFOLIATION [None]
